FAERS Safety Report 8402303-2 (Version None)
Quarter: 2012Q2

REPORT INFORMATION
  Report Type: 
  Country: None (occurrence: None)
  Receive Date: 20120601
  Receipt Date: 20120523
  Transmission Date: 20120825
  Serious: Yes (Other)
  Sender: FDA-Public Use
  Company Number: US-BRISTOL-MYERS SQUIBB COMPANY-16468035

PATIENT
  Age: 69 Year
  Sex: Female

DRUGS (1)
  1. ORENCIA [Suspect]
     Indication: RHEUMATOID ARTHRITIS
     Dosage: NO OF INF 3, RECENT INF 4FEB12,LAST INF:21MAY12 NEXT INF:18JUN12
     Route: 042
     Dates: start: 20120123

REACTIONS (3)
  - COUGH [None]
  - DRUG INEFFECTIVE [None]
  - ARTHROPATHY [None]
